FAERS Safety Report 5879382-X (Version None)
Quarter: 2008Q3

REPORT INFORMATION
  Report Type: 
  Country: None (occurrence: None)
  Receive Date: 20080912
  Receipt Date: 20080903
  Transmission Date: 20090109
  Serious: Yes (Other)
  Sender: FDA-Public Use
  Company Number: B0361175A

PATIENT
  Age: 57 Year
  Sex: Female

DRUGS (13)
  1. SEROXAT [Suspect]
     Indication: DEPRESSION
     Route: 065
     Dates: start: 19990819
  2. PHENYTOIN [Concomitant]
  3. AMITRIPTYLINE HCL [Concomitant]
  4. CITALOPRAM HYDROBROMIDE [Concomitant]
  5. ORLISTAT [Concomitant]
     Dates: start: 20010701
  6. PROTHIADEN [Concomitant]
  7. ZIMOVANE [Concomitant]
  8. LUSTRAL [Concomitant]
  9. EFFEXOR [Concomitant]
  10. ESCITALOPRAM [Concomitant]
  11. AMITRIPTYLINE HCL [Concomitant]
  12. ENALAPRIL MALEATE [Concomitant]
  13. ASPIRIN [Concomitant]

REACTIONS (17)
  - ABNORMAL BEHAVIOUR [None]
  - AGGRESSION [None]
  - AMNESIA [None]
  - ANXIETY [None]
  - BALANCE DISORDER [None]
  - DEPRESSED MOOD [None]
  - DIZZINESS [None]
  - DRUG WITHDRAWAL SYNDROME [None]
  - EMOTIONAL DISTRESS [None]
  - FATIGUE [None]
  - FEELING ABNORMAL [None]
  - HYPERTENSION [None]
  - LETHARGY [None]
  - MYOCARDIAL ISCHAEMIA [None]
  - NAUSEA [None]
  - NIGHTMARE [None]
  - TEARFULNESS [None]
